FAERS Safety Report 15492332 (Version 1)
Quarter: 2018Q4

REPORT INFORMATION
  Report Type: Spontaneous
  Country: US (occurrence: US)
  Receive Date: 20181004
  Receipt Date: 20181004
  Transmission Date: 20190205
  Serious: Yes (Hospitalization)
  Sender: FDA-Public Use
  Company Number: None

PATIENT
  Age: 48 Year
  Sex: Female

DRUGS (7)
  1. VERZENIO [Concomitant]
     Active Substance: ABEMACICLIB
  2. LETROZOLE. [Concomitant]
     Active Substance: LETROZOLE
  3. HYDROCODONE BITARTRATE AND ACETAMINOPHEN [Concomitant]
     Active Substance: ACETAMINOPHEN\HYDROCODONE BITARTRATE
  4. VERZENIO [Suspect]
     Active Substance: ABEMACICLIB
     Indication: NEOPLASM MALIGNANT
     Route: 048
     Dates: start: 20180826
  5. SENOKOT [Concomitant]
     Active Substance: SENNOSIDES
  6. CLONAZEPAM. [Concomitant]
     Active Substance: CLONAZEPAM
  7. CYCLOBENZAPRIN [Concomitant]
     Active Substance: CYCLOBENZAPRINE

REACTIONS (6)
  - Tremor [None]
  - Dizziness [None]
  - Wrong technique in product usage process [None]
  - Abdominal pain upper [None]
  - Product dose omission [None]
  - Diarrhoea [None]

NARRATIVE: CASE EVENT DATE: 20180912
